FAERS Safety Report 7253069-3 (Version None)
Quarter: 2011Q1

REPORT INFORMATION
  Report Type: 
  Country: None (occurrence: None)
  Receive Date: 20110129
  Receipt Date: 20100125
  Transmission Date: 20110831
  Serious: No
  Sender: FDA-Public Use
  Company Number: US-ABBOTT-10P-163-0622438-00

PATIENT
  Sex: Female

DRUGS (1)
  1. HUMIRA [Suspect]
     Indication: CROHN'S DISEASE
     Route: 058
     Dates: start: 20090901, end: 20100101

REACTIONS (5)
  - SWELLING FACE [None]
  - FACIAL PAIN [None]
  - LYMPHADENOPATHY [None]
  - VIRAL INFECTION [None]
  - PAROTID GLAND INFLAMMATION [None]
